FAERS Safety Report 20792985 (Version 1)
Quarter: 2022Q2

REPORT INFORMATION
  Report Type: Other
  Country: US (occurrence: None)
  Receive Date: 20220506
  Receipt Date: 20220506
  Transmission Date: 20220721
  Serious: Yes (Death)
  Sender: FDA-Public Use
  Company Number: US-ROCHE-3089970

PATIENT
  Sex: Female

DRUGS (1)
  1. XELODA [Suspect]
     Active Substance: CAPECITABINE
     Indication: Breast cancer female
     Dosage: TAKE 3 TABLETS (1500MG) BY MOUTH IN THE MORNING AND 2 TABLETS (1000MG) IN THE EVENING FOR 14 DAYS ON
     Route: 048

REACTIONS (1)
  - Death [Fatal]
